FAERS Safety Report 11234804 (Version 1)
Quarter: 2015Q3

REPORT INFORMATION
  Report Type: Spontaneous
  Country: AT (occurrence: AT)
  Receive Date: 20150702
  Receipt Date: 20150702
  Transmission Date: 20151125
  Serious: Yes (Other)
  Sender: FDA-Public Use
  Company Number: AT-GLAXOSMITHKLINE-AT2015GSK094751

PATIENT
  Age: 41 Year
  Sex: Male
  Weight: 82 kg

DRUGS (2)
  1. KIVEXA [Suspect]
     Active Substance: ABACAVIR SULFATE\LAMIVUDINE
     Indication: HIV INFECTION
     Dosage: 1 DF, UNK
     Dates: start: 20150223, end: 20150608
  2. TIVICAY [Suspect]
     Active Substance: DOLUTEGRAVIR SODIUM
     Indication: HIV INFECTION
     Dosage: 1 DF, UNK
     Dates: start: 20150223, end: 20150608

REACTIONS (4)
  - Tunnel vision [Recovered/Resolved]
  - Diarrhoea [Recovered/Resolved]
  - Malaise [Recovered/Resolved]
  - Pupillary disorder [Recovered/Resolved]

NARRATIVE: CASE EVENT DATE: 20150301
